FAERS Safety Report 5930455-2 (Version None)
Quarter: 2008Q4

REPORT INFORMATION
  Report Type: 
  Country: None (occurrence: None)
  Receive Date: 20081022
  Receipt Date: 20081009
  Transmission Date: 20090506
  Serious: Yes (Other)
  Sender: FDA-Public Use
  Company Number: 2008S1018580

PATIENT
  Age: 9 Year
  Sex: Male

DRUGS (6)
  1. SERTRALINE [Suspect]
     Indication: OBSESSIVE-COMPULSIVE DISORDER
     Dosage: 25 MG; DAILY
  2. FLUVOXAMINE MALEATE [Suspect]
     Indication: OBSESSIVE-COMPULSIVE DISORDER
     Dosage: 25 MG; DAILY
  3. FLUOXETINE [Suspect]
     Indication: DEPRESSED MOOD
     Dosage: 25 MG; DAILY, 5 MG; DAILY, 2 MG; DAILY, 4 MG; DAILY
  4. FLUOXETINE [Suspect]
     Indication: OBSESSIVE-COMPULSIVE DISORDER
     Dosage: 25 MG; DAILY, 5 MG; DAILY, 2 MG; DAILY, 4 MG; DAILY
  5. FLUOXETINE [Suspect]
     Indication: DEPRESSED MOOD
     Dosage: 25 MG; DAILY, 5 MG; DAILY, 2 MG; DAILY, 4 MG; DAILY
  6. FLUOXETINE [Suspect]
     Indication: OBSESSIVE-COMPULSIVE DISORDER
     Dosage: 25 MG; DAILY, 5 MG; DAILY, 2 MG; DAILY, 4 MG; DAILY

REACTIONS (7)
  - AFFECTIVE DISORDER [None]
  - BETA HAEMOLYTIC STREPTOCOCCAL INFECTION [None]
  - CHRONIC OBSTRUCTIVE PULMONARY DISEASE [None]
  - NEUROPSYCHOLOGICAL TEST ABNORMAL [None]
  - OBSESSIVE-COMPULSIVE DISORDER [None]
  - SUICIDAL IDEATION [None]
  - VOMITING [None]
